FAERS Safety Report 17447600 (Version 1)
Quarter: 2020Q1

REPORT INFORMATION
  Report Type: Spontaneous
  Country: US (occurrence: US)
  Receive Date: 20200221
  Receipt Date: 20200221
  Transmission Date: 20200409
  Serious: No
  Sender: FDA-Public Use
  Company Number: US-BAUSCH-BL-2020-002873

PATIENT
  Age: 52 Year
  Sex: Male

DRUGS (4)
  1. VITAMIN B12 [Concomitant]
     Active Substance: CYANOCOBALAMIN
     Indication: PRODUCT USED FOR UNKNOWN INDICATION
  2. APRISO [Suspect]
     Active Substance: MESALAMINE
     Indication: CROHN^S DISEASE
     Dosage: TAKING FOR SEVERAL YEARS
     Route: 048
  3. APRISO [Suspect]
     Active Substance: MESALAMINE
     Indication: PRODUCT USE IN UNAPPROVED INDICATION
     Dosage: REDUCED DOSE
     Route: 048
  4. MILK THISTLE [Concomitant]
     Active Substance: DIETARY SUPPLEMENT\HERBALS\MILK THISTLE
     Indication: PRODUCT USED FOR UNKNOWN INDICATION

REACTIONS (7)
  - Condition aggravated [Not Recovered/Not Resolved]
  - Intentional product use issue [Unknown]
  - Pain [Not Recovered/Not Resolved]
  - Loss of employment [Unknown]
  - Inability to afford medication [Unknown]
  - Product use in unapproved indication [Unknown]
  - Diarrhoea [Not Recovered/Not Resolved]

NARRATIVE: CASE EVENT DATE: 201911
